FAERS Safety Report 24549668 (Version 1)
Quarter: 2024Q4

REPORT INFORMATION
  Report Type: Spontaneous
  Country: CN (occurrence: CN)
  Receive Date: 20241025
  Receipt Date: 20241025
  Transmission Date: 20250115
  Serious: Yes (Disabling)
  Sender: NOVARTIS
  Company Number: CN-002147023-NVSC2024CN205916

PATIENT
  Age: 39 Year
  Sex: Female
  Weight: 60 kg

DRUGS (3)
  1. SECUKINUMAB [Suspect]
     Active Substance: SECUKINUMAB
     Indication: Ankylosing spondylitis
     Dosage: 150 MG (1X28)
     Route: 058
     Dates: start: 20240801, end: 20241016
  2. DICLOFENAC SODIUM [Suspect]
     Active Substance: DICLOFENAC SODIUM
     Indication: Ankylosing spondylitis
     Dosage: 75 MG, BID (DUAL RELEASE ENTERIC COATED CAPSULES )
     Route: 048
     Dates: start: 20240729, end: 20241016
  3. THALIDOMIDE [Suspect]
     Active Substance: THALIDOMIDE
     Indication: Ankylosing spondylitis
     Dosage: 25 MG, QD
     Route: 048
     Dates: start: 20240901, end: 20241016

REACTIONS (1)
  - Hepatic function abnormal [Unknown]

NARRATIVE: CASE EVENT DATE: 20241016
